FAERS Safety Report 8297893-7 (Version None)
Quarter: 2012Q2

REPORT INFORMATION
  Report Type: 
  Country: None (occurrence: None)
  Receive Date: 20120419
  Receipt Date: 20120412
  Transmission Date: 20120825
  Serious: Yes (Hospitalization, Other)
  Sender: FDA-Public Use
  Company Number: PHEH2012US006745

PATIENT
  Sex: Female
  Weight: 94 kg

DRUGS (12)
  1. MOBIC [Concomitant]
     Dosage: 1 DF, QD
     Route: 048
  2. OXYMORPHONE [Concomitant]
  3. GILENYA [Suspect]
     Indication: MULTIPLE SCLEROSIS
     Dosage: 0.5 MG, QD
     Route: 048
     Dates: start: 20120323
  4. VITAMIN D [Concomitant]
  5. LIDOCAINE [Concomitant]
  6. DETROL [Concomitant]
     Dosage: 1 DF, QD
  7. LASIX [Concomitant]
  8. FAMPRIDINE [Concomitant]
  9. COLACE [Concomitant]
  10. LYRICA [Concomitant]
     Dosage: 2 DF, QD
     Route: 048
  11. METFORMIN HCL [Concomitant]
  12. AMITRIPTYLINE HCL [Concomitant]

REACTIONS (19)
  - HEART RATE DECREASED [None]
  - BLOOD UREA INCREASED [None]
  - PAIN [None]
  - MUSCULAR WEAKNESS [None]
  - PLATELET COUNT DECREASED [None]
  - BLOOD CALCIUM DECREASED [None]
  - MUSCULOSKELETAL STIFFNESS [None]
  - HEMIPARESIS [None]
  - MUSCLE SPASTICITY [None]
  - PULMONARY HYPERTENSION [None]
  - URINARY TRACT INFECTION [None]
  - BLOOD POTASSIUM INCREASED [None]
  - BLOOD PHOSPHORUS DECREASED [None]
  - MULTIPLE SCLEROSIS RELAPSE [None]
  - MOBILITY DECREASED [None]
  - PAIN IN EXTREMITY [None]
  - HYPOAESTHESIA [None]
  - ATAXIA [None]
  - MONOCYTE COUNT INCREASED [None]
